FAERS Safety Report 21299530 (Version 1)
Quarter: 2022Q3

REPORT INFORMATION
  Report Type: Spontaneous
  Country: FR (occurrence: FR)
  Receive Date: 20220906
  Receipt Date: 20220906
  Transmission Date: 20221026
  Serious: Yes (Life-Threatening, Hospitalization, Other)
  Sender: FDA-Public Use
  Company Number: None

PATIENT
  Age: 64 Year
  Sex: Male
  Weight: 70 kg

DRUGS (20)
  1. METRONIDAZOLE [Suspect]
     Active Substance: METRONIDAZOLE
     Indication: Splenic infarction
     Dosage: 1500 MILLIGRAMS (MG), ONCE DAILY (500 MG X3/DAY)
     Route: 042
     Dates: start: 20220701, end: 20220704
  2. CELLCEPT [Suspect]
     Active Substance: MYCOPHENOLATE MOFETIL
     Indication: Prophylaxis against transplant rejection
     Dosage: 1000 MILLIGRAM (MG), ONCE DAILY (500 MG X2/DAY 8:00 A.M. 8:00 P.M)
     Route: 048
     Dates: start: 20220526, end: 20220627
  3. FLUCONAZOLE [Suspect]
     Active Substance: FLUCONAZOLE
     Dosage: 400 MILLIGRAMS (MG), ONCE DAILY (TRIFLUCAN 200 MG, CAPSULE)
     Route: 048
     Dates: start: 20220630, end: 20220707
  4. CILASTATIN SODIUM\IMIPENEM [Suspect]
     Active Substance: CILASTATIN SODIUM\IMIPENEM
     Indication: Febrile bone marrow aplasia
     Dosage: 3 GRAMS (G), ONCE DAILY, (1 G X3/DAY)
     Route: 042
     Dates: start: 20220624, end: 20220702
  5. NEORAL [Suspect]
     Active Substance: CYCLOSPORINE
     Indication: Bone marrow transplant rejection
     Dosage: 240 MILLIGRAMS (MG), ONCE DAILY, (120 MG 8H 20 H)
     Route: 048
     Dates: start: 20220620, end: 20220623
  6. NEORAL [Suspect]
     Active Substance: CYCLOSPORINE
     Dosage: NEORAL 100 MG, SOFT CAPSULE
     Route: 048
     Dates: start: 20220702
  7. AMIKACIN [Suspect]
     Active Substance: AMIKACIN
     Dosage: 2000 MILLIGRAMS (MG), ONCE DAILLY
     Route: 042
     Dates: start: 20220701, end: 20220702
  8. AMIKACIN [Suspect]
     Active Substance: AMIKACIN
     Dosage: 1000 MILLIGRAMS (MG), ONCE DAILY
     Route: 042
     Dates: start: 20220704, end: 20220704
  9. AMIKACIN [Suspect]
     Active Substance: AMIKACIN
     Dosage: 1500 MILLIGRAMS (MG), ONCE DAILY
     Route: 042
     Dates: start: 20220705, end: 20220706
  10. ZOVIRAX [Suspect]
     Active Substance: ACYCLOVIR
     Dosage: 500 MILLIGRAMS (MG), ONCE DAILY, ZOVIRAX 500 MG, POWDER FOR SOLUTION FOR INJECTION (IV)
     Route: 042
     Dates: start: 20220624, end: 20220630
  11. ZOVIRAX [Suspect]
     Active Substance: ACYCLOVIR
     Dosage: 500 MILLIGRAMS (MG), ONCE DAILY
     Route: 042
     Dates: start: 20220706, end: 20220710
  12. PIPERACILLIN SODIUM\TAZOBACTAM SODIUM [Suspect]
     Active Substance: PIPERACILLIN SODIUM\TAZOBACTAM SODIUM
     Indication: Febrile bone marrow aplasia
     Dosage: 16 GRAMS (G), ONCE DAILY (4 G X4/DAY)
     Route: 042
     Dates: start: 20220530, end: 20220604
  13. PIPERACILLIN SODIUM\TAZOBACTAM SODIUM [Suspect]
     Active Substance: PIPERACILLIN SODIUM\TAZOBACTAM SODIUM
     Dosage: UNK
     Route: 042
     Dates: start: 20220608, end: 20220614
  14. PIPERACILLIN SODIUM\TAZOBACTAM SODIUM [Suspect]
     Active Substance: PIPERACILLIN SODIUM\TAZOBACTAM SODIUM
     Dosage: UNK
     Route: 042
     Dates: start: 20220614, end: 20220622
  15. VANCOMYCIN HYDROCHLORIDE [Suspect]
     Active Substance: VANCOMYCIN HYDROCHLORIDE
     Indication: Febrile bone marrow aplasia
     Dosage: 1500 MILLIGRAM (MG), ONCE DAILY, LOADING DOSE: 25MG/KG
     Route: 042
     Dates: start: 20220614, end: 20220614
  16. VANCOMYCIN HYDROCHLORIDE [Suspect]
     Active Substance: VANCOMYCIN HYDROCHLORIDE
     Dosage: 2600 MILLIGRAMS (MG), 24 HOURS, 20 MG/KG EVERY 12 HOURS
     Route: 042
     Dates: start: 20220614, end: 20220622
  17. FLUCONAZOLE [Suspect]
     Active Substance: FLUCONAZOLE
     Dosage: 400 MILLIGRAMS (MG), ONCE DAILY (1 VIAL/24 HOURS AT 8:00 A.M.)
     Route: 042
     Dates: start: 20220624, end: 20220624
  18. FLUCONAZOLE [Suspect]
     Active Substance: FLUCONAZOLE
     Dosage: 200 MILLIGRAMS (MG), ONCE DAILY, AT 8:00 A.M. (FLUCONAZOLE KABI 2 MG/ML, SOLUTION FOR INFUSION)
     Route: 042
     Dates: start: 20220625, end: 20220630
  19. LINEZOLID [Suspect]
     Active Substance: LINEZOLID
     Indication: Febrile bone marrow aplasia
     Dosage: 1200 MILLIGRAM (MG), ONCE DAILY (600 MG X2/DAY)
     Route: 048
     Dates: start: 20220610, end: 20220614
  20. CYCLOSPORINE [Suspect]
     Active Substance: CYCLOSPORINE
     Indication: Prophylaxis against transplant rejection
     Dosage: 212 MILLIGRAM (MG), ONCE DAILY (105.9 MG X2/DAY) (SANDIMMUN 50 MG/ML, SOLUTION FOR INJECTION FOR IV
     Route: 042
     Dates: start: 20220521

REACTIONS (3)
  - Coma [Recovered/Resolved]
  - Coma [Recovered/Resolved]
  - Confusional state [Not Recovered/Not Resolved]

NARRATIVE: CASE EVENT DATE: 20220628
